FAERS Safety Report 7811617-6 (Version None)
Quarter: 2011Q4

REPORT INFORMATION
  Report Type: 
  Country: None (occurrence: None)
  Receive Date: 20111013
  Receipt Date: 20111007
  Transmission Date: 20120403
  Serious: Yes (Hospitalization)
  Sender: FDA-Public Use
  Company Number: US-GILEAD-2011-0044656

PATIENT

DRUGS (2)
  1. LETAIRIS [Suspect]
     Indication: PULMONARY HYPERTENSION
     Dosage: 5 MG, UNK
     Route: 048
     Dates: start: 20110603
  2. LETAIRIS [Suspect]
     Indication: SICKLE CELL ANAEMIA
     Dosage: 10 MG, UNK
     Route: 048
     Dates: start: 20110218, end: 20110603

REACTIONS (3)
  - MIGRAINE [None]
  - DYSARTHRIA [None]
  - PAIN [None]
